FAERS Safety Report 6203914-5 (Version None)
Quarter: 2009Q2

REPORT INFORMATION
  Report Type: 
  Country: None (occurrence: None)
  Receive Date: 20090527
  Receipt Date: 20090518
  Transmission Date: 20091009
  Serious: Yes (Other)
  Sender: FDA-Public Use
  Company Number: A0784860A

PATIENT
  Sex: Female

DRUGS (1)
  1. LAMICTAL [Suspect]
     Indication: BIPOLAR DISORDER
     Dosage: 100MG UNKNOWN
     Route: 048

REACTIONS (3)
  - IRRITABILITY [None]
  - RASH [None]
  - STEVENS-JOHNSON SYNDROME [None]
